FAERS Safety Report 13678597 (Version 2)
Quarter: 2017Q3

REPORT INFORMATION
  Report Type: Spontaneous
  Country: FR (occurrence: FR)
  Receive Date: 20170622
  Receipt Date: 20170706
  Transmission Date: 20171127
  Serious: Yes (Life-Threatening, Other)
  Sender: FDA-Public Use
  Company Number: FR-GILEAD-2017-0279246

PATIENT
  Age: 67 Year
  Sex: Male

DRUGS (2)
  1. MABTHERA [Suspect]
     Active Substance: RITUXIMAB
     Indication: CHRONIC LYMPHOCYTIC LEUKAEMIA
     Dosage: 1 DF, Q1MONTH
     Route: 042
     Dates: start: 20170209, end: 20170519
  2. ZYDELIG [Suspect]
     Active Substance: IDELALISIB
     Indication: CHRONIC LYMPHOCYTIC LEUKAEMIA
     Dosage: 100 MG, BID
     Route: 048
     Dates: start: 20170209, end: 20170519

REACTIONS (6)
  - Dysphagia [Unknown]
  - Agranulocytosis [Not Recovered/Not Resolved]
  - Lung disorder [Unknown]
  - Hepatocellular injury [Recovered/Resolved]
  - Off label use [Recovered/Resolved]
  - Oral fungal infection [Unknown]

NARRATIVE: CASE EVENT DATE: 20170209
